FAERS Safety Report 7508076-X (Version None)
Quarter: 2011Q2

REPORT INFORMATION
  Report Type: 
  Country: None (occurrence: None)
  Receive Date: 20110527
  Receipt Date: 20110519
  Transmission Date: 20111010
  Serious: Yes (Other)
  Sender: FDA-Public Use
  Company Number: US-BAYER-2011-043558

PATIENT
  Age: 47 Year
  Sex: Female

DRUGS (1)
  1. BETAFERON [Suspect]
     Indication: MULTIPLE SCLEROSIS
     Dosage: 2 MIU, QOD
     Route: 058
     Dates: start: 20110516

REACTIONS (7)
  - PYREXIA [None]
  - HEADACHE [None]
  - HYPOTENSION [None]
  - PAIN [None]
  - PLEURISY [None]
  - INFLUENZA LIKE ILLNESS [None]
  - DYSPNOEA [None]
